FAERS Safety Report 5224365-6 (Version None)
Quarter: 2007Q1

REPORT INFORMATION
  Report Type: 
  Country: None (occurrence: None)
  Receive Date: 20070130
  Receipt Date: 20070120
  Transmission Date: 20070707
  Serious: Yes (Other)
  Sender: FDA-Public Use
  Company Number: US-PFIZER INC-2006150553

PATIENT
  Sex: Male
  Weight: 86.2 kg

DRUGS (4)
  1. CHANTIX [Suspect]
     Indication: SMOKING CESSATION THERAPY
     Dates: start: 20061103, end: 20061216
  2. ACETYLSALICYLIC ACID [Concomitant]
  3. VITAMIN E [Concomitant]
  4. CRESTOR [Concomitant]

REACTIONS (4)
  - BLOOD TRIGLYCERIDES INCREASED [None]
  - HYPERSENSITIVITY [None]
  - RASH GENERALISED [None]
  - WEIGHT INCREASED [None]
